FAERS Safety Report 12351319 (Version 1)
Quarter: 2016Q2

REPORT INFORMATION
  Report Type: Spontaneous
  Country: GB (occurrence: GB)
  Receive Date: 20160510
  Receipt Date: 20160510
  Transmission Date: 20160815
  Serious: Yes (Hospitalization)
  Sender: FDA-Public Use
  Company Number: GB-WATSON-2016-09422

PATIENT
  Age: 79 Year
  Sex: Male
  Weight: 62 kg

DRUGS (3)
  1. REVLIMID [Suspect]
     Active Substance: LENALIDOMIDE
     Indication: MANTLE CELL LYMPHOMA
     Dosage: 10 MG, DAILY, 21 OUT OF 28 DAYS
     Route: 048
     Dates: start: 20160229, end: 20160316
  2. DALTEPARIN [Concomitant]
     Active Substance: DALTEPARIN
     Indication: THROMBOSIS PROPHYLAXIS
     Dosage: 5000 IU, DAILY
     Route: 065
     Dates: start: 20160229, end: 20160316
  3. ALLOPURINOL (UNKNOWN) [Suspect]
     Active Substance: ALLOPURINOL
     Indication: PROPHYLAXIS
     Dosage: 300 MG, DAILY
     Route: 065
     Dates: start: 20160229, end: 20160316

REACTIONS (1)
  - Stevens-Johnson syndrome [Recovered/Resolved]

NARRATIVE: CASE EVENT DATE: 20160318
